APPROVED DRUG PRODUCT: MOMETASONE FUROATE
Active Ingredient: MOMETASONE FUROATE
Strength: 0.1%
Dosage Form/Route: LOTION;TOPICAL
Application: A076788 | Product #001
Applicant: SUN PHARMA CANADA INC
Approved: Mar 15, 2006 | RLD: No | RS: No | Type: DISCN